FAERS Safety Report 7857326-9 (Version None)
Quarter: 2011Q4

REPORT INFORMATION
  Report Type: 
  Country: None (occurrence: None)
  Receive Date: 20111027
  Receipt Date: 20111018
  Transmission Date: 20120403
  Serious: No
  Sender: FDA-Public Use
  Company Number: US-BIOGENIDEC-2011BI039789

PATIENT
  Age: 49 Year
  Sex: Female

DRUGS (1)
  1. TYSABRI [Suspect]
     Indication: MULTIPLE SCLEROSIS
     Route: 042
     Dates: start: 20101029

REACTIONS (6)
  - VITAMIN B12 DECREASED [None]
  - PARAESTHESIA [None]
  - BALANCE DISORDER [None]
  - RESTLESS LEGS SYNDROME [None]
  - INSOMNIA [None]
  - FATIGUE [None]
